FAERS Safety Report 4954139-2 (Version None)
Quarter: 2006Q1

REPORT INFORMATION
  Report Type: 
  Country: None (occurrence: None)
  Receive Date: 20060327
  Receipt Date: 20050710
  Transmission Date: 20060701
  Serious: Yes (Death, Hospitalization)
  Sender: FDA-Public Use
  Company Number: 2005GB01346

PATIENT
  Age: 33524 Day
  Sex: Female

DRUGS (24)
  1. SEROQUEL [Suspect]
     Indication: PSYCHOTIC DISORDER
     Route: 048
     Dates: end: 20041110
  2. SEROQUEL [Interacting]
     Route: 048
     Dates: start: 20050306, end: 20050308
  3. SEROQUEL [Interacting]
     Route: 048
     Dates: start: 20050503, end: 20050706
  4. MODECATE [Interacting]
     Indication: PSYCHOTIC DISORDER
     Route: 065
  5. MODECATE [Interacting]
     Route: 065
  6. LOFEPRAMINE [Interacting]
     Indication: DEPRESSION
     Route: 048
  7. LOFEPRAMINE [Interacting]
     Route: 048
  8. LOFEPRAMINE [Interacting]
     Dosage: INCREASED TO 140MG
     Route: 048
     Dates: start: 20050503
  9. TOLTERODINE TARTRATE [Concomitant]
     Route: 048
  10. ALENDRONATE SODIUM [Concomitant]
     Route: 048
  11. LACTOSE SOLUTION [Concomitant]
     Dosage: 3.35 G/5ML
     Route: 048
  12. ZOPICLONE [Concomitant]
     Indication: INSOMNIA
     Route: 048
  13. TRAMADOL HCL [Concomitant]
     Route: 048
  14. IBUPROFEN [Concomitant]
     Indication: ANALGESIC EFFECT
     Route: 048
     Dates: end: 20050503
  15. ACETAMINOPHEN [Concomitant]
     Dosage: 500MG
     Route: 048
  16. TOLTERODINE [Concomitant]
  17. ADCAL-D3 [Concomitant]
     Dosage: 1.5 G + 10 UG
     Route: 048
  18. PAROXETINE HCL [Concomitant]
     Route: 048
  19. CO-CODAMOL [Concomitant]
     Dosage: 8 MG + 500MG. TAKE 1 0R 2 FOUR TIMES PER DAY
     Route: 048
  20. GLANDOSANE [Concomitant]
     Route: 048
  21. LOFEPRAMINE [Concomitant]
     Route: 048
  22. SENNA [Concomitant]
     Dosage: 7.5MG/5MG, AT NIGHT
     Route: 048
  23. TRIMETHOPRIM [Concomitant]
     Route: 048
  24. IBUPROFEN [Concomitant]
     Route: 048

REACTIONS (9)
  - COORDINATION ABNORMAL [None]
  - DECREASED APPETITE [None]
  - DYSARTHRIA [None]
  - FALL [None]
  - FEELING ABNORMAL [None]
  - MEDICATION ERROR [None]
  - PNEUMONIA ASPIRATION [None]
  - SOMNOLENCE [None]
  - TRANSIENT ISCHAEMIC ATTACK [None]
